FAERS Safety Report 10671840 (Version 1)
Quarter: 2014Q4

REPORT INFORMATION
  Report Type: Spontaneous
  Country: US (occurrence: US)
  Receive Date: 20141223
  Receipt Date: 20141223
  Transmission Date: 20150529
  Serious: Yes (Other)
  Sender: FDA-Public Use
  Company Number: US-ABBVIE-14P-163-1323752-00

PATIENT
  Sex: Male

DRUGS (2)
  1. TESTIM [Suspect]
     Active Substance: TESTOSTERONE
     Indication: PRODUCT USED FOR UNKNOWN INDICATION
     Route: 065
     Dates: start: 2009
  2. ANDROGEL [Suspect]
     Active Substance: TESTOSTERONE
     Indication: PRODUCT USED FOR UNKNOWN INDICATION
     Route: 062
     Dates: start: 20080901, end: 2009

REACTIONS (8)
  - Pain [Unknown]
  - Transient ischaemic attack [Unknown]
  - Economic problem [Unknown]
  - Impaired work ability [Unknown]
  - Injury [Unknown]
  - Thrombosis [Unknown]
  - Cerebrovascular accident [Unknown]
  - Emotional distress [Unknown]

NARRATIVE: CASE EVENT DATE: 200905
